FAERS Safety Report 12939913 (Version 1)
Quarter: 2016Q4

REPORT INFORMATION
  Report Type: Spontaneous
  Country: US (occurrence: US)
  Receive Date: 20161115
  Receipt Date: 20161115
  Transmission Date: 20170207
  Serious: Yes (Hospitalization, Other)
  Sender: FDA-Public Use
  Company Number: US-BAUSCH-BL-2016-027449

PATIENT
  Age: 59 Year
  Sex: Male

DRUGS (1)
  1. XIFAXAN [Suspect]
     Active Substance: RIFAXIMIN
     Indication: PRODUCT USED FOR UNKNOWN INDICATION
     Route: 065

REACTIONS (5)
  - Pneumothorax [Unknown]
  - Hypoxia [Unknown]
  - Hospitalisation [Unknown]
  - Lung infection [Unknown]
  - Confusional state [Unknown]

NARRATIVE: CASE EVENT DATE: 201609
